FAERS Safety Report 8440389-X (Version None)
Quarter: 2012Q2

REPORT INFORMATION
  Report Type: 
  Country: None (occurrence: None)
  Receive Date: 20120615
  Receipt Date: 20120614
  Transmission Date: 20120825
  Serious: Yes (Hospitalization)
  Sender: FDA-Public Use
  Company Number: PHHO2012IL008920

PATIENT
  Sex: Female
  Weight: 59 kg

DRUGS (2)
  1. BENZATHINE BENZYLPENICILLIN [Concomitant]
     Indication: PROPHYLAXIS
     Dosage: 1,200,000 U/IM
     Dates: start: 20040101, end: 20120604
  2. ILARIS [Suspect]
     Indication: JUVENILE ARTHRITIS
     Dosage: 2 MG/KG, UNK
     Dates: start: 20090922, end: 20120604

REACTIONS (2)
  - HISTIOCYTOSIS HAEMATOPHAGIC [None]
  - CYTOMEGALOVIRUS INFECTION [None]
